FAERS Safety Report 22061559 (Version 1)
Quarter: 2023Q1

REPORT INFORMATION
  Report Type: Report from Study
  Country: PT (occurrence: PT)
  Receive Date: 20230304
  Receipt Date: 20230304
  Transmission Date: 20230418
  Serious: Yes (Other)
  Sender: FDA-Public Use
  Company Number: PT-ABBVIE-4175462

PATIENT
  Sex: Female

DRUGS (2)
  1. HUMIRA [Suspect]
     Active Substance: ADALIMUMAB
     Indication: Ankylosing spondylitis
     Route: 058
     Dates: start: 20150724
  2. HUMIRA [Suspect]
     Active Substance: ADALIMUMAB

REACTIONS (4)
  - Demyelination [Not Recovered/Not Resolved]
  - Ankylosing spondylitis [Unknown]
  - Adenovirus test positive [Unknown]
  - Vitamin B12 decreased [Recovering/Resolving]

NARRATIVE: CASE EVENT DATE: 20170101
